FAERS Safety Report 6992648-5 (Version None)
Quarter: 2010Q3

REPORT INFORMATION
  Report Type: 
  Country: None (occurrence: None)
  Receive Date: 20100917
  Receipt Date: 20100908
  Transmission Date: 20110219
  Serious: Yes (Hospitalization)
  Sender: FDA-Public Use
  Company Number: GR-EISAI INC.-E3810-04080-SPO-GR

PATIENT
  Age: 66 Year
  Sex: Female

DRUGS (3)
  1. PARIET (RABEPRAZOLE) [Suspect]
     Indication: PEPTIC ULCER
     Dosage: UNKNOWN
     Route: 048
  2. NEBIVOLOL [Concomitant]
  3. LEVOTHYROXINE [Concomitant]

REACTIONS (6)
  - ANAPHYLACTIC REACTION [None]
  - LOSS OF CONSCIOUSNESS [None]
  - PRURITUS GENERALISED [None]
  - SYNCOPE [None]
  - URINARY INCONTINENCE [None]
  - VOMITING [None]
